FAERS Safety Report 13576531 (Version 1)
Quarter: 2017Q2

REPORT INFORMATION
  Report Type: Spontaneous
  Country: US (occurrence: US)
  Receive Date: 20170524
  Receipt Date: 20170524
  Transmission Date: 20170830
  Serious: Yes (Other)
  Sender: FDA-Public Use
  Company Number: US-SA-2017SA092353

PATIENT
  Sex: Female

DRUGS (1)
  1. ICY HOT (MENTHOL) [Suspect]
     Active Substance: MENTHOL
     Route: 065

REACTIONS (2)
  - Second degree chemical burn of skin [Unknown]
  - Pain [Unknown]

NARRATIVE: CASE EVENT DATE: 20170515
